FAERS Safety Report 9704464 (Version 1)
Quarter: 2013Q4

REPORT INFORMATION
  Report Type: Report from Study
  Country: PL (occurrence: PL)
  Receive Date: 20131122
  Receipt Date: 20131122
  Transmission Date: 20140711
  Serious: Yes (Other)
  Sender: FDA-Public Use
  Company Number: PL-ROCHE-1305890

PATIENT
  Sex: Female

DRUGS (3)
  1. AVASTIN [Suspect]
     Indication: PRODUCT USED FOR UNKNOWN INDICATION
     Dosage: 2 COURSES
     Route: 065
  2. PACLITAXEL [Concomitant]
     Dosage: 3 COURSES
     Route: 065
  3. CARBOPLATIN [Concomitant]
     Dosage: 3 COURSES
     Route: 065

REACTIONS (2)
  - Metastases to bone [Unknown]
  - Disease progression [Unknown]
